FAERS Safety Report 13496512 (Version 1)
Quarter: 2017Q2

REPORT INFORMATION
  Report Type: Spontaneous
  Country: US (occurrence: US)
  Receive Date: 20170428
  Receipt Date: 20170428
  Transmission Date: 20170830
  Serious: Yes (Disabling)
  Sender: FDA-Public Use
  Company Number: None

PATIENT
  Age: 61 Year
  Sex: Female
  Weight: 76.95 kg

DRUGS (4)
  1. AMITRIPTYLENE [Concomitant]
     Active Substance: AMITRIPTYLINE
  2. MOMETASONE FUROATE. [Suspect]
     Active Substance: MOMETASONE FUROATE
     Indication: RHINITIS ALLERGIC
     Dosage: QUANTITY:2 SPRAY(S);?
     Route: 055
  3. OMEPROZELLE [Concomitant]
  4. DILTHIATHAM [Concomitant]

REACTIONS (5)
  - Epistaxis [None]
  - Sleep disorder due to general medical condition, insomnia type [None]
  - Back pain [None]
  - Muscle tightness [None]
  - Myalgia [None]

NARRATIVE: CASE EVENT DATE: 20170415
